FAERS Safety Report 7135524-X (Version None)
Quarter: 2010Q4

REPORT INFORMATION
  Report Type: 
  Country: None (occurrence: None)
  Receive Date: 20101203
  Receipt Date: 20101119
  Transmission Date: 20110411
  Serious: Yes (Other)
  Sender: FDA-Public Use
  Company Number: US-ELI_LILLY_AND_COMPANY-US201011005609

PATIENT
  Sex: Female

DRUGS (15)
  1. ZYPREXA [Suspect]
     Indication: BIPOLAR DISORDER
     Dosage: 20 MG, DAILY (1/D)
     Dates: end: 20080101
  2. PROZAC [Suspect]
     Dosage: 20 MG, UNK
  3. PROZAC [Suspect]
     Dosage: 60 MG, UNK
  4. NEURONTIN [Concomitant]
  5. HEROIN [Concomitant]
  6. DIAZEPAM [Concomitant]
  7. SKELAXIN [Concomitant]
  8. VALIUM [Concomitant]
  9. ALLEGRA [Concomitant]
  10. MOBIC [Concomitant]
  11. ALBUTEROL [Concomitant]
  12. OMEPRAZOLE [Concomitant]
  13. TOPAMAX [Concomitant]
  14. ULTRAM [Concomitant]
  15. RITALIN [Concomitant]

REACTIONS (9)
  - ADVERSE EVENT [None]
  - ANTINUCLEAR ANTIBODY INCREASED [None]
  - DRUG EXPOSURE DURING PREGNANCY [None]
  - DRUG INTERACTION [None]
  - DYSKINESIA [None]
  - HEPATIC ENZYME INCREASED [None]
  - HEPATITIS C [None]
  - RED BLOOD CELL SEDIMENTATION RATE INCREASED [None]
  - WHITE BLOOD CELL COUNT INCREASED [None]
